FAERS Safety Report 5616423-9 (Version None)
Quarter: 2008Q1

REPORT INFORMATION
  Report Type: 
  Country: None (occurrence: None)
  Receive Date: 20080207
  Receipt Date: 20080129
  Transmission Date: 20080703
  Serious: Yes (Hospitalization)
  Sender: FDA-Public Use
  Company Number: US-JNJFOC-20080102761

PATIENT
  Sex: Female
  Weight: 84.82 kg

DRUGS (6)
  1. DURAGESIC-100 [Suspect]
     Indication: PAIN
     Dosage: 2 X 100 MCG/HR PATCHES
     Route: 062
  2. VITAMINS [Concomitant]
     Indication: MEDICAL DIET
     Route: 048
  3. VITAMIN B-12 [Concomitant]
     Indication: ANAEMIA
     Route: 030
  4. KLONOPIN [Concomitant]
     Indication: RESTLESS LEGS SYNDROME
     Route: 048
  5. POTASSIUM CHLORIDE [Concomitant]
     Indication: BLOOD POTASSIUM ABNORMAL
     Route: 065
  6. LASIX [Concomitant]
     Indication: DRUG USE FOR UNKNOWN INDICATION
     Route: 065

REACTIONS (9)
  - BREAKTHROUGH PAIN [None]
  - DIARRHOEA [None]
  - DRUG ADMINISTERED AT INAPPROPRIATE SITE [None]
  - EAR PAIN [None]
  - MUSCLE SPASMS [None]
  - PHARYNGOLARYNGEAL PAIN [None]
  - SEPTIC SHOCK [None]
  - TOOTH ABSCESS [None]
  - WRONG TECHNIQUE IN DRUG USAGE PROCESS [None]
